FAERS Safety Report 9455218 (Version 1)
Quarter: 2013Q1

REPORT INFORMATION
  Report Type: Spontaneous
  Country: FR (occurrence: None)
  Receive Date: 20121211
  Receipt Date: 20121211
  Transmission Date: 20140127
  Serious: Yes (Hospitalization)
  Sender: FDA-Public Use
  Company Number: 217781

PATIENT
  Age: 31 Year
  Sex: Female
  Weight: 82 kg

DRUGS (1)
  1. DAIVOBET OINTMENT (DAIVOBET) [Suspect]
     Route: 061

REACTIONS (3)
  - Premature delivery [None]
  - Exposure during pregnancy [None]
  - Inappropriate schedule of drug administration [None]
